FAERS Safety Report 8784593 (Version 1)
Quarter: 2012Q4

REPORT INFORMATION
  Report Type: Spontaneous
  Country: US (occurrence: None)
  Receive Date: 20120830
  Receipt Date: 20120830
  Transmission Date: 20130627
  Serious: Yes (Hospitalization, Other)
  Sender: FDA-Public Use
  Company Number: IMP_05969_2012

PATIENT
  Age: 24 Year
  Sex: Female

DRUGS (1)
  1. CHLOROQUINE [Suspect]
     Indication: MALARIA PROPHYLAXIS
     Dosage: (250 mg weekly, 500mg total)

REACTIONS (10)
  - Mania [None]
  - Psychotic disorder [None]
  - Hallucinations, mixed [None]
  - Hallucination, tactile [None]
  - Delusion [None]
  - Paranoia [None]
  - Abnormal dreams [None]
  - Flashback [None]
  - Generalised anxiety disorder [None]
  - Post-traumatic stress disorder [None]
